FAERS Safety Report 16342566 (Version 2)
Quarter: 2019Q2

REPORT INFORMATION
  Report Type: Spontaneous
  Country: US (occurrence: US)
  Receive Date: 20190522
  Receipt Date: 20190618
  Transmission Date: 20190711
  Serious: No
  Sender: FDA-Public Use
  Company Number: US-ASTRAZENECA-2019SE65165

PATIENT
  Age: 6 Year
  Sex: Male
  Weight: 22.2 kg

DRUGS (4)
  1. QUVAR [Concomitant]
  2. ALBUTEROL. [Concomitant]
     Active Substance: ALBUTEROL
     Indication: ASTHMA PROPHYLAXIS
     Dosage: AS REQUIRED
     Route: 055
  3. PULMICORT FLEXHALER [Suspect]
     Active Substance: BUDESONIDE
     Indication: ASTHMA
     Route: 055
     Dates: start: 2013, end: 2019
  4. PULMICORT FLEXHALER [Suspect]
     Active Substance: BUDESONIDE
     Indication: ASTHMA
     Route: 055
     Dates: start: 20190329, end: 201904

REACTIONS (5)
  - Device failure [Unknown]
  - Product dose omission [Unknown]
  - Product use issue [Unknown]
  - Off label use [Unknown]
  - Asthma [Unknown]

NARRATIVE: CASE EVENT DATE: 2013
